FAERS Safety Report 16021360 (Version 4)
Quarter: 2019Q2

REPORT INFORMATION
  Report Type: Report from Study
  Country: None (occurrence: HU)
  Receive Date: 20190301
  Receipt Date: 20190501
  Transmission Date: 20190711
  Serious: Yes (Hospitalization)
  Sender: FDA-Public Use
  Company Number: HU-ABBVIE-19S-076-2683003-00

PATIENT
  Age: 63 Year
  Sex: Female
  Weight: 74 kg

DRUGS (2)
  1. DUODOPA [Suspect]
     Active Substance: CARBIDOPA\LEVODOPA
     Indication: PARKINSON^S DISEASE
     Dosage: MD 4 ML; CD 3.2 ML/H;ED 2 ML
     Route: 050
     Dates: start: 20150127
  2. RELAXIN [Concomitant]
     Active Substance: RELAXIN PORCINE
     Indication: DEPRESSION
     Dosage: 2 TABLETS IN THE MORNING
     Route: 048
     Dates: start: 201601

REACTIONS (6)
  - Device occlusion [Unknown]
  - Mental disorder [Not Recovered/Not Resolved]
  - Intentional product misuse [Unknown]
  - Incorrect route of product administration [Unknown]
  - Intestinal dilatation [Recovered/Resolved]
  - Intussusception [Recovered/Resolved]

NARRATIVE: CASE EVENT DATE: 20190215
